FAERS Safety Report 5649511-1 (Version None)
Quarter: 2008Q1

REPORT INFORMATION
  Report Type: 
  Country: None (occurrence: None)
  Receive Date: 20080303
  Receipt Date: 20080303
  Transmission Date: 20080703
  Serious: Yes (Hospitalization)
  Sender: FDA-Public Use
  Company Number: None

PATIENT
  Age: 29 Year
  Sex: Female
  Weight: 46.2669 kg

DRUGS (1)
  1. SULFAMETHOXAZOLE AND TRIMETHOPRIM [Suspect]
     Indication: URINARY TRACT INFECTION
     Dosage: 14 TABS 2X/DAY FOR 7 DAYS PO
     Route: 048
     Dates: start: 20080218, end: 20080225

REACTIONS (2)
  - NAUSEA [None]
  - STEVENS-JOHNSON SYNDROME [None]
